FAERS Safety Report 6079177-0 (Version None)
Quarter: 2009Q1

REPORT INFORMATION
  Report Type: 
  Country: None (occurrence: None)
  Receive Date: 20090216
  Receipt Date: 20090210
  Transmission Date: 20090719
  Serious: Yes (Other)
  Sender: FDA-Public Use
  Company Number: B0556746A

PATIENT
  Age: 85 Year
  Sex: Male

DRUGS (12)
  1. SERETIDE [Suspect]
     Indication: ASTHMA
     Dosage: 250MCG TWICE PER DAY
     Route: 055
     Dates: start: 20080731, end: 20090128
  2. ARICEPT [Suspect]
     Indication: DRUG USE FOR UNKNOWN INDICATION
     Route: 048
  3. TEGRETOL [Suspect]
     Indication: DRUG USE FOR UNKNOWN INDICATION
     Route: 048
  4. NORVASC [Concomitant]
     Route: 048
  5. SIMVASTATIN [Concomitant]
     Route: 048
  6. ASPIRIN [Concomitant]
     Route: 048
  7. PLETAL [Concomitant]
     Route: 048
  8. CYANOCOBALAMIN [Concomitant]
     Route: 065
  9. LAXOBERON [Concomitant]
     Route: 048
  10. MARZULENE-S [Concomitant]
     Route: 048
  11. MINITRO [Concomitant]
     Route: 062
  12. HARNAL [Concomitant]
     Route: 048

REACTIONS (1)
  - HALLUCINATION [None]
